FAERS Safety Report 5093880-0 (Version None)
Quarter: 2006Q3

REPORT INFORMATION
  Report Type: 
  Country: None (occurrence: None)
  Receive Date: 20060728
  Receipt Date: 20060620
  Transmission Date: 20061208
  Serious: No
  Sender: FDA-Public Use
  Company Number: 254279

PATIENT
  Age: 67 Year
  Sex: Female
  Weight: 68.9 kg

DRUGS (15)
  1. LEVEMIR [Suspect]
     Indication: INSULIN-REQUIRING TYPE II DIABETES MELLITUS
     Dosage: 10 IU, QD, SUBCUTANEOUS
     Route: 058
  2. AMARYL [Concomitant]
  3. PLAVIX [Concomitant]
  4. NEURONTIN [Concomitant]
  5. NORVASC [Concomitant]
  6. COZAAR [Concomitant]
  7. RISPERDAL [Concomitant]
  8. TENORMIN [Concomitant]
  9. SYNTHROID [Concomitant]
  10. HYDROCHLOROTHIAZIDE (HYDROCHLOROTHAZIDE) [Concomitant]
  11. ALLOPURINOL [Concomitant]
  12. ZOCOR [Concomitant]
  13. PRILOSEC [Concomitant]
  14. ASA (ACETYLSALCYLIC ACID) [Concomitant]
  15. METHOTREXATE [Concomitant]

REACTIONS (1)
  - BLOOD GLUCOSE INCREASED [None]
